FAERS Safety Report 14900384 (Version 1)
Quarter: 2018Q2

REPORT INFORMATION
  Report Type: Spontaneous
  Country: DK (occurrence: DK)
  Receive Date: 20180516
  Receipt Date: 20180516
  Transmission Date: 20180711
  Serious: Yes (Hospitalization)
  Sender: FDA-Public Use
  Company Number: DK-TEVA-2018-DK-893485

PATIENT
  Age: 24 Year
  Sex: Female

DRUGS (3)
  1. LEVONORGESTREL OG ETHINYLESTRADIOL [Concomitant]
     Indication: ORAL CONTRACEPTION
     Dosage: 1 DOSAGE FORMS DAILY; STRENGTH: 0.15 ? 0.03 MG.
     Route: 048
     Dates: start: 20150109
  2. SUMATRIPTAN. [Concomitant]
     Active Substance: SUMATRIPTAN
     Indication: MIGRAINE
     Dosage: . DOSAGE: 50 MG IN CASE OF SEIZURE.
     Route: 048
     Dates: start: 20170208
  3. IBUPROFEN. [Suspect]
     Active Substance: IBUPROFEN
     Indication: PAIN
     Dosage: STRENGTH: UNKNOWN. TAKEN 2 TABLETS AT 14 AND AT. 20TH
     Route: 048
     Dates: start: 20170815

REACTIONS (3)
  - Lip swelling [Recovering/Resolving]
  - Angioedema [Recovering/Resolving]
  - Throat tightness [Recovering/Resolving]

NARRATIVE: CASE EVENT DATE: 20170815
